FAERS Safety Report 4294440-1 (Version None)
Quarter: 2004Q1

REPORT INFORMATION
  Report Type: 
  Country: None (occurrence: None)
  Receive Date: 20040211
  Receipt Date: 20040514
  Transmission Date: 20041129
  Serious: Yes (Hospitalization)
  Sender: FDA-Public Use
  Company Number: B0290627A

PATIENT
  Age: 49 Year
  Sex: Female

DRUGS (6)
  1. MELPHALAN INJECTION (MELPHALAN) [Suspect]
     Indication: STEM CELL TRANSPLANT
     Dosage: 200 MG/M2/INTRAVENOUS
     Route: 042
  2. DIMETHYL SULPHOXIDE (DIMETHYL SULFOXIDE) [Suspect]
  3. DOXORUBICIN HCL [Concomitant]
  4. DEXAMETHASONE [Concomitant]
  5. CYCLOPHOSPHAMIDE [Concomitant]
  6. GRANULOCYTE COL. STIM. FACT [Concomitant]

REACTIONS (1)
  - RENAL FAILURE [None]
